FAERS Safety Report 7674516-9 (Version None)
Quarter: 2011Q3

REPORT INFORMATION
  Report Type: 
  Country: None (occurrence: None)
  Receive Date: 20110810
  Receipt Date: 20110728
  Transmission Date: 20111222
  Serious: Yes (Other)
  Sender: FDA-Public Use
  Company Number: PHHY2011CY37563

PATIENT
  Age: 39 Year
  Sex: Female
  Weight: 98.5 kg

DRUGS (10)
  1. BISACODYL [Concomitant]
  2. OMEPRAZOLE [Concomitant]
  3. TASIGNA [Suspect]
     Dosage: 400 MG, BID
     Route: 048
     Dates: start: 20110505, end: 20110622
  4. ORAMORPH SR [Concomitant]
  5. LORAZEPAM [Concomitant]
  6. DURAGESIC-100 [Concomitant]
  7. ACETAMINOPHEN [Concomitant]
  8. LEVOTHYROXINE SODIUM [Concomitant]
  9. DOMPERIDONE [Concomitant]
  10. TASIGNA [Suspect]
     Indication: GASTROINTESTINAL STROMAL TUMOUR
     Dosage: 400 MG, BID
     Route: 048
     Dates: start: 20110217, end: 20110427

REACTIONS (4)
  - ELECTROCARDIOGRAM QT PROLONGED [None]
  - HYPOKALAEMIA [None]
  - NAUSEA [None]
  - VOMITING [None]
